FAERS Safety Report 9360872 (Version 4)
Quarter: 2016Q4

REPORT INFORMATION
  Report Type: Report from Study
  Country: NL (occurrence: NL)
  Receive Date: 20130621
  Receipt Date: 20161121
  Transmission Date: 20170207
  Serious: Yes (Hospitalization)
  Sender: FDA-Public Use
  Company Number: NL-ROCHE-1236566

PATIENT
  Age: 67 Year
  Sex: Female
  Weight: 48 kg

DRUGS (5)
  1. SULFASALAZINE. [Concomitant]
     Active Substance: SULFASALAZINE
     Route: 048
     Dates: start: 20120702
  2. TOCILIZUMAB [Suspect]
     Active Substance: TOCILIZUMAB
     Indication: RHEUMATOID ARTHRITIS
     Dosage: LAST DOSE PRIOR TO SAE WAS TAKEN ON 15/MAR/2013
     Route: 042
     Dates: start: 20120610
  3. HYDROXYCHLOROQUINE [Concomitant]
     Active Substance: HYDROXYCHLOROQUINE
     Route: 048
     Dates: start: 20040301
  4. ETORICOXIB [Concomitant]
     Active Substance: ETORICOXIB
     Route: 048
     Dates: start: 20081016
  5. PARACETAMOL/CODEINE [Concomitant]
     Active Substance: ACETAMINOPHEN\CODEINE PHOSPHATE
     Dosage: 500MG/10MG
     Route: 048

REACTIONS (2)
  - Cholecystitis chronic [Recovered/Resolved]
  - Gallbladder disorder [Recovered/Resolved]

NARRATIVE: CASE EVENT DATE: 20130722
